FAERS Safety Report 5940920-X (Version None)
Quarter: 2008Q4

REPORT INFORMATION
  Report Type: 
  Country: None (occurrence: None)
  Receive Date: 20081031
  Receipt Date: 20081023
  Transmission Date: 20090506
  Serious: Yes (Other)
  Sender: FDA-Public Use
  Company Number: 2008SP021711

PATIENT
  Age: 54 Year
  Sex: Female

DRUGS (1)
  1. PEGETRON (PEGINTERFERON ALFA-2B W/RIBAVIRIN) (PEGYLATED INTERFERON ALF [Suspect]
     Indication: DRUG USE FOR UNKNOWN INDICATION
     Dosage: ; SC, ; PO
     Route: 058

REACTIONS (3)
  - CONDITION AGGRAVATED [None]
  - ERYTHEMA [None]
  - RAYNAUD'S PHENOMENON [None]
